FAERS Safety Report 6063998-4 (Version None)
Quarter: 2009Q1

REPORT INFORMATION
  Report Type: 
  Country: None (occurrence: None)
  Receive Date: 20090130
  Receipt Date: 20090115
  Transmission Date: 20090719
  Serious: Yes (Hospitalization)
  Sender: FDA-Public Use
  Company Number: 2280705-2009-00003

PATIENT
  Sex: Male

DRUGS (2)
  1. BOIL-EASE PAINRELIEVING OINTMENT [Suspect]
     Indication: FURUNCLE
     Dosage: NMT 2X DAILY, TOPICAL
     Route: 061
     Dates: start: 20090103, end: 20090104
  2. BOIL-EASE PAINRELIEVING OINTMENT [Suspect]
     Indication: PAIN
     Dosage: NMT 2X DAILY, TOPICAL
     Route: 061
     Dates: start: 20090103, end: 20090104

REACTIONS (2)
  - APPLICATION SITE INFECTION [None]
  - APPLICATION SITE INFLAMMATION [None]
